FAERS Safety Report 4950300-1 (Version None)
Quarter: 2006Q1

REPORT INFORMATION
  Report Type: 
  Country: None (occurrence: None)
  Receive Date: 20060315
  Receipt Date: 20060224
  Transmission Date: 20060701
  Serious: Yes (Death, Hospitalization)
  Sender: FDA-Public Use
  Company Number: IT200602005099

PATIENT
  Sex: Female

DRUGS (5)
  1. GEMCITABINE HYDROCHLORIDE (GEMCITABINE HYDROCHLORIDE) [Suspect]
     Indication: BREAST CANCER METASTATIC
     Dosage: 800 MG/M2, OTHER, INTRAVENOUS
     Route: 042
  2. SODIUM CHLORIDE [Suspect]
     Indication: MEDICATION DILUTION
     Dosage: 250 ML, INTRAVENOUS
     Route: 042
  3. DOXORUBICIN HCL [Concomitant]
  4. ANTIEMETICS AND ANTINAUSEANTS [Concomitant]
  5. DEXTROSE INFUSION FLUID 5% (GLUCOSE) [Concomitant]

REACTIONS (5)
  - ANAEMIA [None]
  - DRUG TOXICITY [None]
  - NEUTROPENIA [None]
  - PULMONARY EMBOLISM [None]
  - THROMBOCYTOPENIA [None]
